FAERS Safety Report 18876444 (Version 2)
Quarter: 2021Q1

REPORT INFORMATION
  Report Type: Report from Study
  Country: GB (occurrence: GB)
  Receive Date: 20210210
  Receipt Date: 20210219
  Transmission Date: 20210420
  Serious: Yes (Life-Threatening, Hospitalization)
  Sender: FDA-Public Use
  Company Number: GB-PFIZER INC-2021105967

PATIENT
  Age: 73 Year
  Sex: Female
  Weight: 81.2 kg

DRUGS (3)
  1. FULVESTRANT. [Suspect]
     Active Substance: FULVESTRANT
     Indication: BREAST CANCER
     Dosage: 500 MG
     Route: 030
     Dates: start: 20160514
  2. VISTUSERTIB. [Suspect]
     Active Substance: VISTUSERTIB
     Indication: BREAST CANCER
     Dosage: 75 MG
     Route: 048
     Dates: start: 20160514
  3. PALBOCICLIB [Suspect]
     Active Substance: PALBOCICLIB
     Indication: BREAST CANCER
     Dosage: 75 MG
     Route: 048
     Dates: start: 20160514

REACTIONS (1)
  - Spinal cord compression [Not Recovered/Not Resolved]

NARRATIVE: CASE EVENT DATE: 20210122
